FAERS Safety Report 8547129 (Version 3)
Quarter: 2012Q4

REPORT INFORMATION
  Report Type: 
  Country: US (occurrence: US)
  Receive Date: 20120504
  Receipt Date: 20121228
  Transmission Date: 20130627
  Serious: Yes (Congenital Anomaly, Other)
  Sender: FDA-Public Use
  Company Number: US-PFIZER INC-2012107864

PATIENT
  Age: 3 Week
  Sex: Female
  Weight: 2.06 kg

DRUGS (9)
  1. ZOLOFT [Suspect]
     Indication: DEPRESSION
     Dosage: 50 mg, 1x/day
     Route: 064
     Dates: start: 20070508
  2. ZOLOFT [Suspect]
     Indication: ANXIETY
     Dosage: 100 mg, 1x/day
     Route: 064
     Dates: start: 20090827
  3. CLONAZEPAM [Concomitant]
     Dosage: UNK
     Route: 064
  4. PRENATAL VITAMINS [Concomitant]
     Dosage: UNK
     Route: 064
  5. KLONOPIN [Concomitant]
     Dosage: 0.25 mg, 2x/day
     Route: 064
     Dates: start: 20090909
  6. VITAMIN B12 [Concomitant]
     Indication: ANEMIA
     Dosage: 1000 mg, weekly
     Route: 064
     Dates: start: 20100113
  7. POTASSIUM CHLORIDE [Concomitant]
     Indication: HYPOKALEMIA
     Dosage: 30 mg, 1x/day
     Route: 064
     Dates: start: 20100113
  8. FERROUS SULFATE [Concomitant]
     Indication: HEMOGLOBIN
     Dosage: 325 mg, 2x/day
     Route: 064
     Dates: start: 20100303
  9. COLACE [Concomitant]
     Indication: CONSTIPATION
     Dosage: 100 mg, UNK
     Route: 064
     Dates: start: 20100317

REACTIONS (4)
  - Maternal exposure timing unspecified [Unknown]
  - Gastroschisis [Unknown]
  - Heart disease congenital [Unknown]
  - Sepsis [Unknown]
